FAERS Safety Report 25144432 (Version 1)
Quarter: 2025Q2

REPORT INFORMATION
  Report Type: Report from Study
  Country: BR (occurrence: BR)
  Receive Date: 20250401
  Receipt Date: 20250401
  Transmission Date: 20250716
  Serious: Yes (Hospitalization, Disabling, Other)
  Sender: MYLAN
  Company Number: BR-MYLANLABS-2025M1025788

PATIENT
  Sex: Female
  Weight: 55 kg

DRUGS (44)
  1. LATANOPROST [Suspect]
     Active Substance: LATANOPROST
     Indication: Glaucoma
  2. LATANOPROST [Suspect]
     Active Substance: LATANOPROST
     Route: 047
  3. LATANOPROST [Suspect]
     Active Substance: LATANOPROST
     Route: 047
  4. LATANOPROST [Suspect]
     Active Substance: LATANOPROST
  5. XALATAN [Suspect]
     Active Substance: LATANOPROST
     Indication: Glaucoma
     Dosage: 1 DROP, PM
     Dates: start: 1995, end: 2024
  6. XALATAN [Suspect]
     Active Substance: LATANOPROST
     Dosage: 1 DROP, PM
     Dates: start: 1995, end: 2024
  7. XALATAN [Suspect]
     Active Substance: LATANOPROST
     Dosage: 1 DROP, PM
     Route: 047
     Dates: start: 1995, end: 2024
  8. XALATAN [Suspect]
     Active Substance: LATANOPROST
     Dosage: 1 DROP, PM
     Route: 047
     Dates: start: 1995, end: 2024
  9. XALATAN [Suspect]
     Active Substance: LATANOPROST
     Dosage: 1 DROP, PM (1 DROP IN EACH EYE EVERY NIGHT)
  10. XALATAN [Suspect]
     Active Substance: LATANOPROST
     Dosage: 1 DROP, PM (1 DROP IN EACH EYE EVERY NIGHT)
  11. XALATAN [Suspect]
     Active Substance: LATANOPROST
     Dosage: 1 DROP, PM (1 DROP IN EACH EYE EVERY NIGHT)
     Route: 047
  12. XALATAN [Suspect]
     Active Substance: LATANOPROST
     Dosage: 1 DROP, PM (1 DROP IN EACH EYE EVERY NIGHT)
     Route: 047
  13. BENICAR [Suspect]
     Active Substance: OLMESARTAN MEDOXOMIL
     Indication: Product used for unknown indication
  14. BENICAR [Suspect]
     Active Substance: OLMESARTAN MEDOXOMIL
     Route: 065
  15. BENICAR [Suspect]
     Active Substance: OLMESARTAN MEDOXOMIL
     Route: 065
  16. BENICAR [Suspect]
     Active Substance: OLMESARTAN MEDOXOMIL
  17. LEVAMLODIPINE BESYLATE [Suspect]
     Active Substance: LEVAMLODIPINE BESYLATE
     Indication: Product used for unknown indication
  18. LEVAMLODIPINE BESYLATE [Suspect]
     Active Substance: LEVAMLODIPINE BESYLATE
     Route: 065
  19. LEVAMLODIPINE BESYLATE [Suspect]
     Active Substance: LEVAMLODIPINE BESYLATE
     Route: 065
  20. LEVAMLODIPINE BESYLATE [Suspect]
     Active Substance: LEVAMLODIPINE BESYLATE
  21. ROSUVASTATIN [Suspect]
     Active Substance: ROSUVASTATIN
     Indication: Product used for unknown indication
  22. ROSUVASTATIN [Suspect]
     Active Substance: ROSUVASTATIN
     Route: 065
  23. ROSUVASTATIN [Suspect]
     Active Substance: ROSUVASTATIN
     Route: 065
  24. ROSUVASTATIN [Suspect]
     Active Substance: ROSUVASTATIN
  25. ASPIRIN [Suspect]
     Active Substance: ASPIRIN
     Indication: Product used for unknown indication
  26. ASPIRIN [Suspect]
     Active Substance: ASPIRIN
     Route: 065
  27. ASPIRIN [Suspect]
     Active Substance: ASPIRIN
     Route: 065
  28. ASPIRIN [Suspect]
     Active Substance: ASPIRIN
  29. DAPAGLIFLOZIN [Suspect]
     Active Substance: DAPAGLIFLOZIN
     Indication: Product used for unknown indication
  30. DAPAGLIFLOZIN [Suspect]
     Active Substance: DAPAGLIFLOZIN
     Route: 065
  31. DAPAGLIFLOZIN [Suspect]
     Active Substance: DAPAGLIFLOZIN
     Route: 065
  32. DAPAGLIFLOZIN [Suspect]
     Active Substance: DAPAGLIFLOZIN
  33. CILOSTAZOL [Suspect]
     Active Substance: CILOSTAZOL
     Indication: Product used for unknown indication
  34. CILOSTAZOL [Suspect]
     Active Substance: CILOSTAZOL
     Route: 065
  35. CILOSTAZOL [Suspect]
     Active Substance: CILOSTAZOL
     Route: 065
  36. CILOSTAZOL [Suspect]
     Active Substance: CILOSTAZOL
  37. PURAN [Suspect]
     Active Substance: LEVOTHYROXINE SODIUM
     Indication: Product used for unknown indication
  38. PURAN [Suspect]
     Active Substance: LEVOTHYROXINE SODIUM
     Route: 065
  39. PURAN [Suspect]
     Active Substance: LEVOTHYROXINE SODIUM
     Route: 065
  40. PURAN [Suspect]
     Active Substance: LEVOTHYROXINE SODIUM
  41. METFORMIN [Suspect]
     Active Substance: METFORMIN HYDROCHLORIDE
     Indication: Product used for unknown indication
  42. METFORMIN [Suspect]
     Active Substance: METFORMIN HYDROCHLORIDE
     Route: 065
  43. METFORMIN [Suspect]
     Active Substance: METFORMIN HYDROCHLORIDE
     Route: 065
  44. METFORMIN [Suspect]
     Active Substance: METFORMIN HYDROCHLORIDE

REACTIONS (5)
  - Bedridden [Not Recovered/Not Resolved]
  - Coronary artery occlusion [Unknown]
  - Hospitalisation [Recovered/Resolved]
  - Eye irritation [Recovered/Resolved]
  - Product packaging quantity issue [Unknown]

NARRATIVE: CASE EVENT DATE: 20020101
